FAERS Safety Report 6168494-1 (Version None)
Quarter: 2009Q2

REPORT INFORMATION
  Report Type: 
  Country: None (occurrence: None)
  Receive Date: 20090427
  Receipt Date: 20090417
  Transmission Date: 20091009
  Serious: Yes (Death, Hospitalization)
  Sender: FDA-Public Use
  Company Number: A0780390A

PATIENT
  Age: 55 Year
  Sex: Male
  Weight: 113.6 kg

DRUGS (5)
  1. AVANDIA [Suspect]
     Indication: DIABETES MELLITUS
     Dosage: 8MG PER DAY
     Route: 048
     Dates: start: 20020101, end: 20061005
  2. GLUCOTROL [Concomitant]
  3. CENTRUM [Concomitant]
  4. FLEXERIL [Concomitant]
  5. ZANTAC [Concomitant]

REACTIONS (1)
  - CEREBROVASCULAR ACCIDENT [None]
